FAERS Safety Report 7583363-8 (Version None)
Quarter: 2011Q2

REPORT INFORMATION
  Report Type: 
  Country: None (occurrence: None)
  Receive Date: 20110627
  Receipt Date: 20110627
  Transmission Date: 20111010
  Serious: Yes (Other)
  Sender: FDA-Public Use
  Company Number: None

PATIENT
  Age: 19 Year
  Sex: Female
  Weight: 81.6475 kg

DRUGS (1)
  1. MEDROXYPROGESTERONE ACETATE [Suspect]
     Indication: CONTRACEPTION
     Dosage: 150 MG 1 EVERY 3 MONTH IM
     Route: 030
     Dates: start: 20110107, end: 20110611

REACTIONS (5)
  - ABASIA [None]
  - ERYTHEMA [None]
  - PAIN IN EXTREMITY [None]
  - CONTUSION [None]
  - IMPAIRED WORK ABILITY [None]
